FAERS Safety Report 20393248 (Version 1)
Quarter: 2022Q1

REPORT INFORMATION
  Report Type: Spontaneous
  Country: US (occurrence: US)
  Receive Date: 20220128
  Receipt Date: 20220128
  Transmission Date: 20220423
  Serious: Yes (Death)
  Sender: FDA-Public Use
  Company Number: US-CELGENE-USA-20220107464

PATIENT
  Age: 80 Year
  Sex: Female
  Weight: 53.572 kg

DRUGS (1)
  1. ONUREG [Suspect]
     Active Substance: AZACITIDINE
     Indication: Acute myeloid leukaemia
     Dosage: 300 MILLIGRAM
     Route: 048
     Dates: start: 20211021, end: 20220114

REACTIONS (1)
  - Death [Fatal]

NARRATIVE: CASE EVENT DATE: 20220114
